FAERS Safety Report 5379832-1 (Version None)
Quarter: 2007Q3

REPORT INFORMATION
  Report Type: 
  Country: None (occurrence: None)
  Receive Date: 20070703
  Receipt Date: 20070618
  Transmission Date: 20080115
  Serious: Yes (Other)
  Sender: FDA-Public Use
  Company Number: 2007BI012898

PATIENT
  Age: 45 Year
  Sex: Female
  Weight: 67 kg

DRUGS (4)
  1. AVONEX [Suspect]
     Indication: MULTIPLE SCLEROSIS
     Dosage: 30 UG;QW;IM
     Route: 030
     Dates: start: 20050701, end: 20060701
  2. AVONEX [Suspect]
     Indication: MULTIPLE SCLEROSIS
     Dosage: 30 UG;QW;IM
     Route: 030
     Dates: start: 20060701
  3. ALPIS REGINA GLOBULES [Concomitant]
  4. ARGENTUM METALLICUM [Concomitant]

REACTIONS (2)
  - CERVIX CARCINOMA STAGE 0 [None]
  - HUMAN PAPILLOMA VIRUS TEST POSITIVE [None]
